FAERS Safety Report 5717819-7 (Version None)
Quarter: 2008Q2

REPORT INFORMATION
  Report Type: 
  Country: None (occurrence: None)
  Receive Date: 20080425
  Receipt Date: 20080421
  Transmission Date: 20081010
  Serious: Yes (Death, Other)
  Sender: FDA-Public Use
  Company Number: FI-AVENTIS-200811774EU

PATIENT
  Age: 69 Year
  Sex: Male

DRUGS (10)
  1. KLEXANE                            /01708202/ [Suspect]
     Indication: ACUTE CORONARY SYNDROME
     Route: 058
     Dates: start: 20080411, end: 20080412
  2. AGGRASTAT [Suspect]
     Indication: ACUTE CORONARY SYNDROME
     Route: 041
     Dates: start: 20080311, end: 20080312
  3. PRIMASPAN [Suspect]
     Indication: ACUTE CORONARY SYNDROME
     Route: 048
     Dates: start: 20080411, end: 20080412
  4. LIDOCARD [Concomitant]
     Indication: ACUTE CORONARY SYNDROME
     Route: 042
     Dates: start: 20080411, end: 20080411
  5. MORPHINE [Concomitant]
     Indication: ACUTE CORONARY SYNDROME
     Route: 042
     Dates: start: 20080411, end: 20080411
  6. NITROSID [Concomitant]
     Indication: ACUTE CORONARY SYNDROME
     Route: 042
     Dates: start: 20080411, end: 20080411
  7. FURESIS [Concomitant]
     Indication: ACUTE CORONARY SYNDROME
     Route: 042
     Dates: start: 20080411, end: 20080411
  8. CORDARONE [Concomitant]
     Indication: ACUTE CORONARY SYNDROME
     Route: 042
     Dates: start: 20080411, end: 20080411
  9. EMCONCOR COMP [Concomitant]
     Dosage: DOSE: 5MG/12.5MG
     Route: 048
     Dates: end: 20080411
  10. MICARDIS [Concomitant]
     Route: 048
     Dates: end: 20080411

REACTIONS (5)
  - ANAEMIA [None]
  - DEATH [None]
  - GASTROINTESTINAL HAEMORRHAGE [None]
  - HAEMATEMESIS [None]
  - HAEMATURIA [None]
